FAERS Safety Report 9054276 (Version 2)
Quarter: 2013Q2

REPORT INFORMATION
  Report Type: Report from Study
  Country: JP (occurrence: JP)
  Receive Date: 20130208
  Receipt Date: 20130514
  Transmission Date: 20140414
  Serious: Yes (Other)
  Sender: FDA-Public Use
  Company Number: JP-GLAXOSMITHKLINE-B0865192A

PATIENT
  Age: 63 Year
  Sex: Female
  Weight: 32 kg

DRUGS (15)
  1. REVOLADE [Suspect]
     Indication: IDIOPATHIC THROMBOCYTOPENIC PURPURA
     Route: 048
     Dates: start: 20110120, end: 20110202
  2. REVOLADE [Suspect]
     Indication: IDIOPATHIC THROMBOCYTOPENIC PURPURA
     Route: 048
     Dates: start: 20110203, end: 20120205
  3. REVOLADE [Suspect]
     Indication: IDIOPATHIC THROMBOCYTOPENIC PURPURA
     Route: 048
     Dates: start: 20120206, end: 20120301
  4. THYRADIN S [Concomitant]
     Route: 048
  5. PREDONINE [Concomitant]
     Route: 048
  6. LIPITOR [Concomitant]
     Route: 048
  7. PERSANTIN [Concomitant]
     Route: 048
  8. SELBEX [Concomitant]
     Route: 048
  9. MAGMITT [Concomitant]
     Route: 048
  10. SALIGREN [Concomitant]
     Route: 048
  11. FOSAMAC [Concomitant]
     Route: 048
  12. KALIMATE [Concomitant]
     Route: 048
  13. NOVOLIN N [Concomitant]
     Dosage: 14IU PER DAY
     Route: 058
  14. NOVOLIN N [Concomitant]
     Dosage: 18IU PER DAY
     Route: 058
  15. VITAMEDIN [Concomitant]
     Route: 048

REACTIONS (1)
  - Renal impairment [Not Recovered/Not Resolved]
